FAERS Safety Report 11572852 (Version 1)
Quarter: 2015Q3

REPORT INFORMATION
  Report Type: Report from Study
  Country: CA (occurrence: CA)
  Receive Date: 20150929
  Receipt Date: 20150929
  Transmission Date: 20151125
  Serious: Yes (Other)
  Sender: FDA-Public Use
  Company Number: CA-JNJFOC-20150919966

PATIENT
  Age: 64 Year
  Sex: Male
  Weight: 117.98 kg

DRUGS (1)
  1. STELARA [Suspect]
     Active Substance: USTEKINUMAB
     Indication: PSORIASIS
     Dates: start: 20090429

REACTIONS (2)
  - Carpal tunnel syndrome [Unknown]
  - Glaucoma [Unknown]

NARRATIVE: CASE EVENT DATE: 20150915
